FAERS Safety Report 13898951 (Version 1)
Quarter: 2017Q3

REPORT INFORMATION
  Report Type: Spontaneous
  Country: US (occurrence: None)
  Receive Date: 20170822
  Receipt Date: 20170822
  Transmission Date: 20171127
  Serious: Yes (Hospitalization)
  Sender: FDA-Public Use
  Company Number: None

PATIENT
  Age: 68 Year
  Sex: Male

DRUGS (1)
  1. BRILINTA [Suspect]
     Active Substance: TICAGRELOR
     Dates: start: 20150101, end: 20150113

REACTIONS (8)
  - Drug-induced liver injury [None]
  - Failure to thrive [None]
  - Bile duct stone [None]
  - Renal impairment [None]
  - Hepatic enzyme increased [None]
  - Jaundice [None]
  - Dialysis [None]
  - Cholestasis [None]

NARRATIVE: CASE EVENT DATE: 20150113
